FAERS Safety Report 6196321-5 (Version None)
Quarter: 2009Q2

REPORT INFORMATION
  Report Type: 
  Country: None (occurrence: None)
  Receive Date: 20090515
  Receipt Date: 20090121
  Transmission Date: 20091009
  Serious: No
  Sender: FDA-Public Use
  Company Number: AE 2009-012

PATIENT
  Age: 35 Year
  Sex: Female

DRUGS (3)
  1. FAZACLO ODT [Suspect]
     Dosage: 550 MG DAILY PO
     Route: 048
     Dates: start: 20070617, end: 20090126
  2. LEVAQUIN [Concomitant]
  3. PREDNISONE [Concomitant]

REACTIONS (3)
  - ASTHMA [None]
  - BRONCHITIS [None]
  - NEUTROPHILIA [None]
